FAERS Safety Report 19395598 (Version 1)
Quarter: 2021Q2

REPORT INFORMATION
  Report Type: Spontaneous
  Country: US (occurrence: US)
  Receive Date: 20210609
  Receipt Date: 20210609
  Transmission Date: 20210717
  Serious: Yes (Life-Threatening, Hospitalization, Other)
  Sender: FDA-Public Use
  Company Number: US-ASTRAZENECA-2021A500995

PATIENT
  Age: 848 Month
  Sex: Female
  Weight: 44.9 kg

DRUGS (4)
  1. ATROVENT [Concomitant]
     Active Substance: IPRATROPIUM BROMIDE
  2. DEXAMETHASONE. [Concomitant]
     Active Substance: DEXAMETHASONE
  3. ALBUTEROL. [Concomitant]
     Active Substance: ALBUTEROL
  4. BEVESPI AEROSPHERE [Suspect]
     Active Substance: FORMOTEROL FUMARATE\GLYCOPYRROLATE
     Indication: DYSPNOEA
     Dosage: 9/4.8MCG
     Route: 055
     Dates: start: 201809

REACTIONS (9)
  - Cardiac arrest [Recovered/Resolved]
  - Arthropod sting [Unknown]
  - Weight increased [Unknown]
  - Oxygen saturation decreased [Unknown]
  - Loss of consciousness [Unknown]
  - Lung disorder [Unknown]
  - Dyspnoea [Unknown]
  - Inappropriate schedule of product administration [Unknown]
  - Drug dependence [Unknown]

NARRATIVE: CASE EVENT DATE: 201909
